FAERS Safety Report 15286179 (Version 1)
Quarter: 2018Q3

REPORT INFORMATION
  Report Type: Spontaneous
  Country: US (occurrence: US)
  Receive Date: 20180802
  Receipt Date: 20180802
  Transmission Date: 20181010
  Serious: Yes (Other)
  Sender: FDA-Public Use
  Company Number: None

PATIENT
  Age: 64 Year
  Sex: Male

DRUGS (9)
  1. SODIUM BICARBONATE 10GR [Concomitant]
     Dates: start: 20180720
  2. CLONIDINE 0.3MG/24H WEEKLY PATCH [Concomitant]
     Dates: start: 20180801
  3. ONE TOUCH ULTRA [Concomitant]
     Dates: start: 20170825
  4. RANITIDINE. [Concomitant]
     Active Substance: RANITIDINE
     Dates: start: 20180726
  5. HYDRALAZINE 100MG [Concomitant]
     Active Substance: HYDRALAZINE HYDROCHLORIDE
     Dates: start: 20180405
  6. HUMULIN INSULIN [Concomitant]
     Active Substance: INSULIN HUMAN
     Dates: start: 20180725
  7. NOVOLIN INSULIN [Concomitant]
     Dates: start: 20180801
  8. ISOSORBIDE MONONITRATE 30MG ER [Concomitant]
     Dates: start: 20180726
  9. VELTASSA [Suspect]
     Active Substance: PATIROMER
     Route: 048
     Dates: start: 20180511, end: 20180730

REACTIONS (2)
  - Swelling [None]
  - Pruritus [None]
